FAERS Safety Report 18650480 (Version 1)
Quarter: 2020Q4

REPORT INFORMATION
  Report Type: Spontaneous
  Country: US (occurrence: US)
  Receive Date: 20201222
  Receipt Date: 20201222
  Transmission Date: 20210114
  Serious: No
  Sender: FDA-Public Use
  Company Number: US-ASTRAZENECA-2020SF57092

PATIENT

DRUGS (9)
  1. MELOXICAM. [Concomitant]
     Active Substance: MELOXICAM
  2. FASLODEX [Suspect]
     Active Substance: FULVESTRANT
     Route: 030
  3. FASLODEX [Concomitant]
     Active Substance: FULVESTRANT
  4. PERCOCET [Concomitant]
     Active Substance: ACETAMINOPHEN\OXYCODONE HYDROCHLORIDE
  5. CYMBALTA [Concomitant]
     Active Substance: DULOXETINE HYDROCHLORIDE
  6. IBRANCE [Suspect]
     Active Substance: PALBOCICLIB
     Indication: BREAST CANCER
     Dosage: 125 MG / DAILY FOR 21 OF 28 DAYS
     Route: 048
     Dates: start: 20201110
  7. AMITRIPTYLINE [Concomitant]
     Active Substance: AMITRIPTYLINE
  8. SPIRONOLACTONE. [Concomitant]
     Active Substance: SPIRONOLACTONE
  9. ZOFRAN [Concomitant]
     Active Substance: ONDANSETRON HYDROCHLORIDE

REACTIONS (7)
  - Pain in extremity [Unknown]
  - Muscle rupture [Unknown]
  - Pain [Unknown]
  - Ill-defined disorder [Unknown]
  - Thirst [Unknown]
  - Oral discomfort [Unknown]
  - Arthralgia [Unknown]
